FAERS Safety Report 8281052 (Version 3)
Quarter: 2014Q1

REPORT INFORMATION
  Report Type: Spontaneous
  Country: US (occurrence: US)
  Receive Date: 20111208
  Receipt Date: 20140107
  Transmission Date: 20141002
  Serious: Yes (Hospitalization, Other)
  Sender: FDA-Public Use
  Company Number: US-ASTRAZENECA-2010SE23990

PATIENT
  Age: 74 Year
  Sex: Female

DRUGS (7)
  1. CRESTOR [Suspect]
     Indication: BLOOD CHOLESTEROL INCREASED
     Dosage: QD
     Route: 048
     Dates: end: 201311
  2. LISINOPRIL [Suspect]
     Indication: HYPERTENSION
     Route: 048
  3. AROMACIN [Concomitant]
     Indication: BREAST CANCER
     Route: 048
  4. CITALOPRAM [Concomitant]
     Indication: NEURALGIA
     Route: 048
  5. TRAZODONE [Concomitant]
     Indication: SLEEP DISORDER
     Route: 048
  6. ASPIRIN [Concomitant]
     Route: 048
  7. XANAX [Concomitant]
     Dosage: QD
     Route: 048

REACTIONS (10)
  - Breast cancer female [Unknown]
  - Plasma cell myeloma [Unknown]
  - Neoplasm malignant [Unknown]
  - Fibromyalgia [Unknown]
  - Hypertension [Unknown]
  - Rheumatoid arthritis [Unknown]
  - Blood calcium increased [Unknown]
  - Blood cholesterol increased [Recovering/Resolving]
  - Intentional drug misuse [Unknown]
  - Drug dose omission [Not Recovered/Not Resolved]
